FAERS Safety Report 15490441 (Version 2)
Quarter: 2018Q4

REPORT INFORMATION
  Report Type: Spontaneous
  Country: TR (occurrence: TR)
  Receive Date: 20181011
  Receipt Date: 20181011
  Transmission Date: 20190205
  Serious: Yes (Hospitalization, Other)
  Sender: FDA-Public Use
  Company Number: PHHY2018TR104296

PATIENT
  Age: 38 Year
  Sex: Female

DRUGS (3)
  1. PREDNISOLONE. [Suspect]
     Active Substance: PREDNISOLONE
     Indication: PROPHYLAXIS
     Dosage: 4 MG, Q6H (FOR NEXT 48 HOURS)
     Route: 042
  2. PROPOFOL SANDOZ [Suspect]
     Active Substance: PROPOFOL
     Indication: PRODUCT USED FOR UNKNOWN INDICATION
     Dosage: UNK
     Route: 065
  3. PHENIRAMINE MALEATE [Concomitant]
     Active Substance: PHENIRAMINE MALEATE
     Indication: PROPHYLAXIS
     Dosage: 40 MG, Q12H (FOR NEXT 24 HOURS)
     Route: 042

REACTIONS (5)
  - Drug ineffective [Unknown]
  - Bronchospasm [Unknown]
  - Angioedema [Unknown]
  - Hypotension [Unknown]
  - Urticaria [Unknown]
